FAERS Safety Report 5058410-8 (Version None)
Quarter: 2006Q2

REPORT INFORMATION
  Report Type: 
  Country: None (occurrence: None)
  Receive Date: 20060628
  Receipt Date: 20060131
  Transmission Date: 20061013
  Serious: Yes (Hospitalization)
  Sender: FDA-Public Use
  Company Number: 2362602

PATIENT
  Age: 43 Year
  Sex: Female
  Weight: 89.4 kg

DRUGS (3)
  1. KLONOPIN [Suspect]
     Indication: GENERALISED ANXIETY DISORDER
     Dosage: 0.5 1 PER 3DAY ORAL
     Route: 048
     Dates: start: 19960615, end: 20021023
  2. ZIAC [Concomitant]
  3. VITAMINS (MULTIVITAMINS NOS) [Concomitant]

REACTIONS (13)
  - ASTHENIA [None]
  - BALANCE DISORDER [None]
  - DRUG WITHDRAWAL SYNDROME [None]
  - EYELID PTOSIS [None]
  - FALL [None]
  - FEELING HOT [None]
  - GAIT DISTURBANCE [None]
  - HEART RATE IRREGULAR [None]
  - PARAESTHESIA [None]
  - PERIPHERAL COLDNESS [None]
  - TREMOR [None]
  - VERTIGO [None]
  - VISION BLURRED [None]
